FAERS Safety Report 10643721 (Version 1)
Quarter: 2014Q4

REPORT INFORMATION
  Report Type: Spontaneous
  Country: US (occurrence: US)
  Receive Date: 20141210
  Receipt Date: 20141210
  Transmission Date: 20150529
  Serious: No
  Sender: FDA-Public Use
  Company Number: US-NOVEN-14US009575

PATIENT
  Age: 57 Year
  Sex: Female

DRUGS (6)
  1. OXYCODONE [Concomitant]
     Active Substance: OXYCODONE
     Indication: PRODUCT USED FOR UNKNOWN INDICATION
     Dosage: UNK
     Route: 065
  2. FENTANYL. [Suspect]
     Active Substance: FENTANYL
     Indication: INTERVERTEBRAL DISC PROTRUSION
     Dosage: 100 UG/HR, QOD
     Route: 062
     Dates: start: 20140506
  3. FENTANYL. [Suspect]
     Active Substance: FENTANYL
     Dosage: 75 UG/HR, QOD
     Route: 062
     Dates: start: 20140506, end: 20140505
  4. FENTANYL. [Suspect]
     Active Substance: FENTANYL
     Dosage: 50 UG/HR, QOD
     Route: 062
     Dates: start: 20140506
  5. OXYCONTIN [Concomitant]
     Active Substance: OXYCODONE HYDROCHLORIDE
     Indication: PRODUCT USED FOR UNKNOWN INDICATION
     Dosage: UNK
  6. DILAUDID [Concomitant]
     Active Substance: HYDROMORPHONE HYDROCHLORIDE
     Indication: PRODUCT USED FOR UNKNOWN INDICATION
     Dosage: UNK

REACTIONS (5)
  - Somnolence [Recovering/Resolving]
  - Agitation [Not Recovered/Not Resolved]
  - Drug effect increased [Recovered/Resolved]
  - Tremor [Not Recovered/Not Resolved]
  - Product quality issue [Not Recovered/Not Resolved]

NARRATIVE: CASE EVENT DATE: 20140506
